FAERS Safety Report 8920490 (Version 1)
Quarter: 2012Q4

REPORT INFORMATION
  Report Type: 
  Country: US (occurrence: US)
  Receive Date: 20121122
  Receipt Date: 20121122
  Transmission Date: 20130627
  Serious: Yes (Other)
  Sender: FDA-Public Use
  Company Number: CHPA2012US023676

PATIENT
  Age: 83 Year
  Sex: Female

DRUGS (1)
  1. MAALOX ANTACID/ANTIGAS MAX LIQ UNKNOWN [Suspect]
     Indication: CHEST PAIN
     Dosage: 1 tbsp, once every few months
     Route: 048
     Dates: start: 1992

REACTIONS (2)
  - Cystitis [Recovered/Resolved]
  - Off label use [Unknown]
